FAERS Safety Report 9942307 (Version 3)
Quarter: 2014Q2

REPORT INFORMATION
  Report Type: Spontaneous
  Country: IT (occurrence: IT)
  Receive Date: 20140303
  Receipt Date: 20140513
  Transmission Date: 20141212
  Serious: Yes (Hospitalization)
  Sender: FDA-Public Use
  Company Number: PHHY2014IT022109

PATIENT
  Age: 77 Year
  Sex: Male

DRUGS (13)
  1. TASIGNA [Suspect]
     Indication: CHRONIC MYELOID LEUKAEMIA
     Dosage: 400 MG, BID
     Route: 048
     Dates: start: 20110218, end: 20140131
  2. ORAL BLOOD GLUCOSE LOWERING DRUGS [Concomitant]
  3. ACETYLSALICYLIC ACID [Concomitant]
  4. CLOPIDOGREL [Concomitant]
     Indication: CARDIAC DISORDER
     Dates: start: 2009
  5. METFONORM [Concomitant]
     Dosage: 2125 MG
     Route: 048
  6. TICLOPIDINE [Concomitant]
     Dosage: 500 MG, UNK
     Route: 048
  7. MONOCINQUE [Concomitant]
     Dosage: 40 MG
     Route: 048
  8. PROCORALAN [Concomitant]
     Dosage: 15 MG
     Route: 048
  9. CONCOR [Concomitant]
     Dosage: 10 MG
     Route: 048
  10. PARIET [Concomitant]
     Dosage: 20 MG
     Route: 048
  11. PRAVASTATINA ALTER [Concomitant]
     Dosage: 40 MG
     Route: 048
  12. GLIBOMET [Concomitant]
     Dosage: 1200 MG
     Route: 048
  13. ESKIM [Concomitant]
     Dosage: 2000 MG
     Route: 048

REACTIONS (4)
  - Osteonecrosis [Recovering/Resolving]
  - Infection [Recovering/Resolving]
  - Eschar [Recovering/Resolving]
  - Skin ulcer [Recovering/Resolving]
